FAERS Safety Report 9306230 (Version 1)
Quarter: 2013Q2

REPORT INFORMATION
  Report Type: Spontaneous
  Country: US (occurrence: US)
  Receive Date: 20130523
  Receipt Date: 20130523
  Transmission Date: 20140414
  Serious: No
  Sender: FDA-Public Use
  Company Number: US-ASTRAZENECA-2013SE33812

PATIENT
  Sex: Male

DRUGS (1)
  1. SEROQUEL XR [Suspect]
     Indication: AFFECTIVE DISORDER
     Dosage: UNKNOWN DOSE, DAILY
     Route: 048

REACTIONS (5)
  - Mood swings [Unknown]
  - Intentional drug misuse [Unknown]
  - Intentional drug misuse [Unknown]
  - Drug effect increased [Unknown]
  - Drug ineffective [Unknown]
